FAERS Safety Report 16619858 (Version 3)
Quarter: 2019Q3

REPORT INFORMATION
  Report Type: Report from Study
  Country: EG (occurrence: EG)
  Receive Date: 20190723
  Receipt Date: 20190903
  Transmission Date: 20191004
  Serious: Yes (Hospitalization, Other)
  Sender: FDA-Public Use
  Company Number: EG-NOVOPROD-671130

PATIENT
  Sex: Male

DRUGS (6)
  1. DOXIUM [Concomitant]
     Active Substance: CALCIUM DOBESILATE
     Dosage: UNK
     Route: 065
  2. GANATON [Concomitant]
     Active Substance: ITOPRIDE
     Indication: PRODUCT USED FOR UNKNOWN INDICATION
     Dosage: UNK
     Route: 065
  3. MIXTARD 30 HM PENFILL [Suspect]
     Active Substance: INSULIN HUMAN
     Dosage: 60 IU
     Route: 065
     Dates: start: 20190511
  4. MIXTARD 30 HM PENFILL [Suspect]
     Active Substance: INSULIN HUMAN
     Indication: DIABETES MELLITUS
     Dosage: 50-65 IU(STARTED 10 YEARS AGO)
     Route: 065
  5. MILGA [Concomitant]
     Dosage: UNK
     Route: 065
  6. ZINC. [Concomitant]
     Active Substance: ZINC
     Dosage: UNK
     Route: 065

REACTIONS (7)
  - Wrong technique in product usage process [Unknown]
  - Hypoglycaemic unconsciousness [Recovered/Resolved]
  - Injection site injury [Unknown]
  - Extra dose administered [Unknown]
  - Device malfunction [Unknown]
  - Blood glucose increased [Unknown]
  - Injection site pain [Unknown]

NARRATIVE: CASE EVENT DATE: 20190511
